FAERS Safety Report 14360750 (Version 1)
Quarter: 2018Q1

REPORT INFORMATION
  Report Type: Spontaneous
  Country: US (occurrence: US)
  Receive Date: 20180106
  Receipt Date: 20180106
  Transmission Date: 20180509
  Serious: Yes (Hospitalization, Other)
  Sender: FDA-Public Use
  Company Number: US-JNJFOC-20171235119

PATIENT
  Age: 22 Year
  Sex: Male

DRUGS (2)
  1. APAP [Suspect]
     Active Substance: ACETAMINOPHEN
     Indication: PRODUCT USED FOR UNKNOWN INDICATION
     Route: 048
  2. APAP [Suspect]
     Active Substance: ACETAMINOPHEN
     Route: 048

REACTIONS (5)
  - Intentional overdose [Unknown]
  - Alanine aminotransferase increased [Recovering/Resolving]
  - International normalised ratio increased [Unknown]
  - Aspartate aminotransferase increased [Recovering/Resolving]
  - Suicide attempt [Unknown]
